FAERS Safety Report 9610673 (Version 1)
Quarter: 2013Q4

REPORT INFORMATION
  Report Type: Report from Study
  Country: US (occurrence: US)
  Receive Date: 20131009
  Receipt Date: 20131009
  Transmission Date: 20140711
  Serious: Yes (Hospitalization)
  Sender: FDA-Public Use
  Company Number: US-US-EMD SERONO, INC.-7241548

PATIENT
  Age: 66 Year
  Sex: Female

DRUGS (2)
  1. REBIF [Suspect]
     Indication: MULTIPLE SCLEROSIS
     Route: 058
     Dates: start: 20091006, end: 201305
  2. IBUPROFEN [Suspect]
     Indication: PREMEDICATION

REACTIONS (2)
  - Duodenitis haemorrhagic [Recovered/Resolved]
  - Influenza like illness [Unknown]
